FAERS Safety Report 15060587 (Version 2)
Quarter: 2018Q2

REPORT INFORMATION
  Report Type: Spontaneous
  Country: US (occurrence: US)
  Receive Date: 20180625
  Receipt Date: 20180629
  Transmission Date: 20180711
  Serious: No
  Sender: FDA-Public Use
  Company Number: US-PFIZER INC-2018254380

PATIENT
  Age: 81 Year
  Sex: Female
  Weight: 38 kg

DRUGS (1)
  1. SUTENT [Suspect]
     Active Substance: SUNITINIB MALATE
     Indication: GASTROINTESTINAL STROMAL TUMOUR
     Dosage: 25 MG, CYCLIC (14 DAYS THAN 7 DAYS OFF, THEN 14 ON AND 7 DAYS OFF, THEN REPEATED CYCLES)
     Route: 048
     Dates: start: 201805

REACTIONS (2)
  - Drug prescribing error [Unknown]
  - Weight decreased [Unknown]

NARRATIVE: CASE EVENT DATE: 2018
